FAERS Safety Report 12764615 (Version 1)
Quarter: 2016Q3

REPORT INFORMATION
  Report Type: Spontaneous
  Country: PL (occurrence: PL)
  Receive Date: 20160920
  Receipt Date: 20160920
  Transmission Date: 20161109
  Serious: Yes (Death, Other)
  Sender: FDA-Public Use
  Company Number: PL-TAKEDA-2016MPI008162

PATIENT
  Age: 57 Year
  Sex: Female

DRUGS (4)
  1. MELPHALAN [Concomitant]
     Active Substance: MELPHALAN
     Dosage: UNK
     Route: 065
  2. VELCADE [Suspect]
     Active Substance: BORTEZOMIB
     Indication: AMYLOIDOSIS
     Dosage: 2.06 MG, UNK
     Route: 058
  3. VELCADE [Suspect]
     Active Substance: BORTEZOMIB
     Dosage: 2.05 MG, UNK
     Route: 058
  4. DEXAMETAZON [Concomitant]
     Dosage: UNK
     Route: 065

REACTIONS (4)
  - Product use issue [Unknown]
  - Gastrointestinal toxicity [Fatal]
  - Off label use [Unknown]
  - Intestinal obstruction [Fatal]

NARRATIVE: CASE EVENT DATE: 20151217
